FAERS Safety Report 6167535-5 (Version None)
Quarter: 2009Q2

REPORT INFORMATION
  Report Type: 
  Country: None (occurrence: None)
  Receive Date: 20090424
  Receipt Date: 20080917
  Transmission Date: 20091009
  Serious: No
  Sender: FDA-Public Use
  Company Number: A0747961A

PATIENT
  Sex: Male

DRUGS (1)
  1. FLOVENT [Suspect]
     Route: 055
     Dates: start: 20080201

REACTIONS (4)
  - CANDIDIASIS [None]
  - DRUG ADMINISTRATION ERROR [None]
  - DRY THROAT [None]
  - OESOPHAGITIS [None]
